FAERS Safety Report 9955484 (Version 1)
Quarter: 2014Q1

REPORT INFORMATION
  Report Type: Report from Study
  Country: US (occurrence: US)
  Receive Date: 20140304
  Receipt Date: 20140304
  Transmission Date: 20141002
  Serious: No
  Sender: FDA-Public Use
  Company Number: US-ABBVIE-13P-163-1088094-00

PATIENT
  Age: 78 Year
  Sex: Female

DRUGS (15)
  1. HUMIRA [Suspect]
     Indication: RHEUMATOID ARTHRITIS
  2. EVISTA [Concomitant]
     Indication: HORMONE REPLACEMENT THERAPY
  3. IMURAN [Concomitant]
     Indication: CROHN^S DISEASE
  4. LIPITOR [Concomitant]
     Indication: BLOOD CHOLESTEROL
     Dosage: EVERY NIGHT AT BEDTIME
  5. NEXIUM [Concomitant]
     Indication: GASTROOESOPHAGEAL REFLUX DISEASE
  6. SINGULAIR [Concomitant]
     Indication: ASTHMA
     Dosage: EVERY NIGHT AT BEDTIME
  7. VALIUM [Concomitant]
     Indication: NERVOUSNESS
  8. DOXEPIN [Concomitant]
     Indication: FIBROMYALGIA
     Dosage: EVERY BEDTIME
  9. AMBIEN [Concomitant]
     Indication: INSOMNIA
     Dosage: EVERY NIGHT AT BEDTIME
  10. FLORASTOR [Concomitant]
     Indication: PRODUCT USED FOR UNKNOWN INDICATION
     Dosage: DAILY
  11. VICODIN [Concomitant]
     Indication: PAIN
     Dosage: 5/500MG EVERY DAY
  12. FLORINEF [Concomitant]
     Indication: MIGRAINE
  13. BUDESONIDE [Concomitant]
     Indication: ASTHMA
     Dosage: VIA NEBULIZER DAILY
  14. CYMBALTA [Concomitant]
     Indication: ANXIETY
  15. CYMBALTA [Concomitant]
     Indication: DEPRESSION
     Dates: start: 20130508

REACTIONS (4)
  - Poor quality sleep [Not Recovered/Not Resolved]
  - Anxiety [Not Recovered/Not Resolved]
  - Migraine [Not Recovered/Not Resolved]
  - Asthma [Not Recovered/Not Resolved]
